FAERS Safety Report 4765688-4 (Version None)
Quarter: 2005Q3

REPORT INFORMATION
  Report Type: 
  Country: None (occurrence: None)
  Receive Date: 20050906
  Receipt Date: 20050817
  Transmission Date: 20060218
  Serious: Yes (Hospitalization)
  Sender: FDA-Public Use
  Company Number: CA_050107616

PATIENT
  Age: 73 Year
  Sex: Female
  Weight: 63 kg

DRUGS (10)
  1. FORTEO [Suspect]
     Indication: OSTEOPOROSIS
     Dosage: 20 UG DAY
     Dates: start: 20041119
  2. DOCUSATE SODIUM [Concomitant]
  3. ATENOLOL [Concomitant]
  4. CALCIUM GLUCONATE [Concomitant]
  5. VITAMION D [Concomitant]
  6. MULTI-VITAMINS [Concomitant]
  7. ASPIRIN [Concomitant]
  8. VITAMIN E [Concomitant]
  9. HALIBUT-LIVER OIL [Concomitant]
  10. GARLIC [Concomitant]

REACTIONS (4)
  - DRUG DOSE OMISSION [None]
  - LIMB DISCOMFORT [None]
  - LOWER LIMB FRACTURE [None]
  - SKIN NODULE [None]
